FAERS Safety Report 4939913-0 (Version None)
Quarter: 2006Q1

REPORT INFORMATION
  Report Type: 
  Country: None (occurrence: None)
  Receive Date: 20060310
  Receipt Date: 20060309
  Transmission Date: 20060701
  Serious: Yes (Other)
  Sender: FDA-Public Use
  Company Number: US-GLAXOSMITHKLINE-A0596830A

PATIENT
  Age: 15 Year
  Sex: Male

DRUGS (1)
  1. PAXIL [Suspect]
     Indication: DEPRESSION
     Dosage: 40MG PER DAY
     Route: 048
     Dates: start: 20020808, end: 20021211

REACTIONS (3)
  - PARAPLEGIA [None]
  - SPINAL CORD INJURY [None]
  - SUICIDE ATTEMPT [None]
